FAERS Safety Report 17981058 (Version 3)
Quarter: 2020Q3

REPORT INFORMATION
  Report Type: Spontaneous
  Country: GB (occurrence: GB)
  Receive Date: 20200704
  Receipt Date: 20200929
  Transmission Date: 20201103
  Serious: Yes (Death, Congenital Anomaly, Other)
  Sender: FDA-Public Use
  Company Number: NVSC2020GB188200

PATIENT

DRUGS (6)
  1. SEBIVO [Suspect]
     Active Substance: TELBIVUDINE
     Indication: FOETAL EXPOSURE DURING PREGNANCY
     Dosage: UNK
     Route: 064
  2. RITONAVIR. [Suspect]
     Active Substance: RITONAVIR
     Indication: FOETAL EXPOSURE DURING PREGNANCY
     Dosage: (MOTHER: DATE: 22 JAN 2000, 500 MG, QD)
     Route: 064
  3. DIDANOSINE. [Suspect]
     Active Substance: DIDANOSINE
     Indication: FOETAL EXPOSURE DURING PREGNANCY
     Dosage: (MOTHER: DATE: 22 JAN 2004, 400 MG, QD, FREQUENCY OF PRODUCT : 1D/400 MG/DAY)
     Route: 064
  4. NORVIR [Suspect]
     Active Substance: RITONAVIR
     Indication: FOETAL EXPOSURE DURING PREGNANCY
     Dosage: (MOTHER: DATE: 22 JAN 2000, 500 MILLIGRAM, QD/500 MG/DAY)
     Route: 064
  5. RETROVIR [Suspect]
     Active Substance: ZIDOVUDINE
     Indication: FOETAL EXPOSURE DURING PREGNANCY
     Dosage: (MOTHER: DATE: 22 JAN 2000, 250 MG (500MG, QD), FREQUENCY OF PRODUCT : 2D)
     Route: 064
  6. NEVIRAPINE. [Suspect]
     Active Substance: NEVIRAPINE
     Indication: FOETAL EXPOSURE DURING PREGNANCY
     Dosage: (MOTHER: DATE: 22 JAN 2000, 400 MG, QD),FREQUENCY OF PRODUCT : 1D/400 MG/DAY)
     Route: 064

REACTIONS (4)
  - Pulmonary hypoplasia [Fatal]
  - Congenital central nervous system anomaly [Fatal]
  - Foetal exposure during pregnancy [Recovered/Resolved]
  - Stillbirth [Fatal]

NARRATIVE: CASE EVENT DATE: 200406
